FAERS Safety Report 11122454 (Version 1)
Quarter: 2015Q2

REPORT INFORMATION
  Report Type: Spontaneous
  Country: US (occurrence: None)
  Receive Date: 20150518
  Receipt Date: 20150518
  Transmission Date: 20150821
  Serious: Yes (Life-Threatening, Hospitalization)
  Sender: FDA-Public Use
  Company Number: None

PATIENT
  Age: 63 Year
  Sex: Male
  Weight: 88.45 kg

DRUGS (5)
  1. INVOKANA [Suspect]
     Active Substance: CANAGLIFLOZIN
     Indication: DIABETES MELLITUS
     Dosage: 1
     Route: 048
     Dates: start: 20150105, end: 20150220
  2. INVOKANA [Suspect]
     Active Substance: CANAGLIFLOZIN
     Indication: BLOOD GLUCOSE FLUCTUATION
     Dosage: 1
     Route: 048
     Dates: start: 20150105, end: 20150220
  3. NOVOLOGUE [Concomitant]
  4. LEVOCITRINE [Concomitant]
  5. LANTUS [Concomitant]
     Active Substance: INSULIN GLARGINE

REACTIONS (2)
  - Apparent death [None]
  - Ketoacidosis [None]

NARRATIVE: CASE EVENT DATE: 20150220
